FAERS Safety Report 7742511-7 (Version None)
Quarter: 2011Q3

REPORT INFORMATION
  Report Type: 
  Country: None (occurrence: None)
  Receive Date: 20110912
  Receipt Date: 20110908
  Transmission Date: 20111222
  Serious: Yes (Other)
  Sender: FDA-Public Use
  Company Number: US-BAYER-2011-071689

PATIENT
  Age: 66 Year
  Sex: Male

DRUGS (1)
  1. NEXAVAR [Suspect]
     Indication: LUNG NEOPLASM MALIGNANT
     Dosage: 400 MG, BID
     Route: 048
     Dates: start: 20110809

REACTIONS (7)
  - DIARRHOEA [None]
  - JOINT SWELLING [None]
  - ASTHENIA [None]
  - WEIGHT DECREASED [None]
  - JOINT EFFUSION [None]
  - ARTHRALGIA [None]
  - PRURITUS [None]
